FAERS Safety Report 5476563-4 (Version None)
Quarter: 2007Q3

REPORT INFORMATION
  Report Type: 
  Country: None (occurrence: None)
  Receive Date: 20070927
  Receipt Date: 20060814
  Transmission Date: 20080115
  Serious: Yes (Hospitalization)
  Sender: FDA-Public Use
  Company Number: FABR-11617

PATIENT
  Sex: Female
  Weight: 79.1 kg

DRUGS (2)
  1. FABRAZYME [Suspect]
     Indication: FABRY'S DISEASE
     Dosage: 80 MG Q2WKS IV
     Route: 042
     Dates: start: 20060101
  2. UNSPECIFIED MEDICATION [Concomitant]

REACTIONS (1)
  - TACHYCARDIA [None]
